FAERS Safety Report 12235170 (Version 1)
Quarter: 2016Q2

REPORT INFORMATION
  Report Type: Spontaneous
  Country: US (occurrence: US)
  Receive Date: 20160404
  Receipt Date: 20160404
  Transmission Date: 20160815
  Serious: Yes (Other)
  Sender: FDA-Public Use
  Company Number: US-ELI_LILLY_AND_COMPANY-US201603011121

PATIENT

DRUGS (6)
  1. VANDETANIB. [Suspect]
     Active Substance: VANDETANIB
     Indication: BILE DUCT CANCER
     Dosage: 200 MG, QD
     Route: 048
  2. GEMCITABINE HYDROCHLORIDE. [Suspect]
     Active Substance: GEMCITABINE HYDROCHLORIDE
     Indication: BILE DUCT CANCER
     Dosage: 1000 MG/M2, CYCLICAL
     Route: 042
  3. VANDETANIB. [Suspect]
     Active Substance: VANDETANIB
     Indication: PANCREATIC CARCINOMA
     Dosage: 300 MG, QD
     Route: 048
  4. CAPECITABINE. [Suspect]
     Active Substance: CAPECITABINE
     Indication: PANCREATIC CARCINOMA
  5. GEMCITABINE HYDROCHLORIDE. [Suspect]
     Active Substance: GEMCITABINE HYDROCHLORIDE
     Indication: PANCREATIC CARCINOMA
  6. CAPECITABINE. [Suspect]
     Active Substance: CAPECITABINE
     Indication: BILE DUCT CANCER
     Dosage: 850 MG/M2, BID
     Route: 048

REACTIONS (1)
  - Pulmonary embolism [Unknown]
